FAERS Safety Report 6852624-X (Version None)
Quarter: 2010Q3

REPORT INFORMATION
  Report Type: 
  Country: None (occurrence: None)
  Receive Date: 20100717
  Receipt Date: 20080129
  Transmission Date: 20110219
  Serious: No
  Sender: FDA-Public Use
  Company Number: US-PFIZER INC-2007096585

PATIENT
  Sex: Female
  Weight: 70.8 kg

DRUGS (15)
  1. CHANTIX [Suspect]
     Indication: SMOKING CESSATION THERAPY
     Dates: start: 20071101
  2. CHANTIX [Suspect]
     Indication: NICOTINE DEPENDENCE
  3. FENOFIBRATE [Concomitant]
  4. VOLTAREN [Concomitant]
     Dosage: 10/40 DAILY
  5. PREVACID [Concomitant]
  6. ZOLOFT [Concomitant]
  7. PERPHENAZINE [Concomitant]
  8. DEPAKOTE [Concomitant]
  9. ADVAIR DISKUS 100/50 [Concomitant]
     Dosage: 150/50
  10. SPIRIVA [Concomitant]
  11. ALBUTEROL [Concomitant]
  12. XALATAN [Concomitant]
  13. PREDNISONE [Concomitant]
  14. METFORMIN HCL [Concomitant]
  15. ALL OTHER THERAPEUTIC PRODUCTS [Concomitant]

REACTIONS (9)
  - ABNORMAL DREAMS [None]
  - DIZZINESS [None]
  - FACIAL PAIN [None]
  - HEADACHE [None]
  - MUSCLE SPASMS [None]
  - MUSCULAR WEAKNESS [None]
  - SINUSITIS [None]
  - SWELLING FACE [None]
  - TREMOR [None]
